FAERS Safety Report 15982769 (Version 1)
Quarter: 2019Q1

REPORT INFORMATION
  Report Type: Spontaneous
  Country: US (occurrence: US)
  Receive Date: 20190219
  Receipt Date: 20190219
  Transmission Date: 20190418
  Serious: No
  Sender: FDA-Public Use
  Company Number: US-AKRON, INC.-2062911

PATIENT

DRUGS (1)
  1. THERATEARS [Suspect]
     Active Substance: CARBOXYMETHYLCELLULOSE SODIUM

REACTIONS (6)
  - Foreign body sensation in eyes [Recovered/Resolved]
  - Eyelid disorder [Recovered/Resolved]
  - Eye irritation [Recovered/Resolved]
  - Ocular hyperaemia [Recovered/Resolved]
  - Eye pain [Recovered/Resolved]
  - Corneal abrasion [Recovered/Resolved]
